FAERS Safety Report 7207338-3 (Version None)
Quarter: 2011Q1

REPORT INFORMATION
  Report Type: 
  Country: None (occurrence: None)
  Receive Date: 20110103
  Receipt Date: 20101222
  Transmission Date: 20110831
  Serious: Yes (Hospitalization)
  Sender: FDA-Public Use
  Company Number: B0687953A

PATIENT
  Sex: Male
  Weight: 102 kg

DRUGS (4)
  1. OFATUMUMAB [Suspect]
     Indication: MANTLE CELL LYMPHOMA
     Route: 042
     Dates: start: 20101018
  2. BENDAMUSTINE [Suspect]
     Indication: MANTLE CELL LYMPHOMA
     Route: 042
     Dates: start: 20101018
  3. EUTIROX [Concomitant]
     Indication: THYROIDECTOMY
     Dosage: 125MG PER DAY
     Route: 048
     Dates: start: 20030101
  4. PRADIF [Concomitant]
     Dosage: .4MG PER DAY
     Route: 048

REACTIONS (2)
  - FEBRILE NEUTROPENIA [None]
  - CYTOMEGALOVIRUS INFECTION [None]
